FAERS Safety Report 5706688-7 (Version None)
Quarter: 2008Q2

REPORT INFORMATION
  Report Type: 
  Country: None (occurrence: None)
  Receive Date: 20080415
  Receipt Date: 20080415
  Transmission Date: 20081010
  Serious: Yes (Life-Threatening, Other)
  Sender: FDA-Public Use
  Company Number: None

PATIENT
  Sex: Female
  Weight: 68.0396 kg

DRUGS (10)
  1. VIVAGLOBIN [Suspect]
     Indication: IMMUNODEFICIENCY COMMON VARIABLE
     Dosage: 8 GRAMS IN 50 ML. ONE 4 HR INFUSION SQ
     Route: 058
     Dates: start: 20080411, end: 20080411
  2. VIVAGLOBIN [Suspect]
  3. PREDNISONE [Concomitant]
  4. ALTACE [Concomitant]
  5. ATENOLOL [Concomitant]
  6. ELMIRON [Concomitant]
  7. THYROID TAB [Concomitant]
  8. ALPRAZOLAM [Concomitant]
  9. FOCALIN XR CAPSULE [Concomitant]
  10. CLARITHROMYCIN XR -TEVA- [Concomitant]

REACTIONS (10)
  - ARTHRALGIA [None]
  - ASTHMA [None]
  - BRONCHOSPASM [None]
  - COUGH [None]
  - FATIGUE [None]
  - INFUSION RELATED REACTION [None]
  - MALAISE [None]
  - MYALGIA [None]
  - RASH MACULAR [None]
  - SYSTEMIC LUPUS ERYTHEMATOSUS RASH [None]
